FAERS Safety Report 13013118 (Version 1)
Quarter: 2016Q4

REPORT INFORMATION
  Report Type: Spontaneous
  Country: US (occurrence: US)
  Receive Date: 20161209
  Receipt Date: 20161209
  Transmission Date: 20170207
  Serious: No
  Sender: FDA-Public Use
  Company Number: US-BAYER-2016-229464

PATIENT
  Age: 5 Year
  Sex: Male
  Weight: 21.32 kg

DRUGS (5)
  1. NOSE SPRAY [Concomitant]
     Dosage: UNK
  2. CLARITIN [Suspect]
     Active Substance: LORATADINE
     Indication: NASOPHARYNGITIS
     Dosage: 2 DF, ONCE
     Route: 048
     Dates: start: 20161202, end: 20161202
  3. ANTIBIOTIC [BACITRACIN,POLYMYXIN B SULFATE] [Concomitant]
     Dosage: UNK
  4. CLARITIN [Suspect]
     Active Substance: LORATADINE
     Indication: NASAL CONGESTION
  5. CLARITIN [Suspect]
     Active Substance: LORATADINE
     Indication: HYPERSENSITIVITY
     Dosage: UNK
     Route: 048
     Dates: start: 201611

REACTIONS (2)
  - Drug administered to patient of inappropriate age [Unknown]
  - Extra dose administered [Unknown]

NARRATIVE: CASE EVENT DATE: 201611
